FAERS Safety Report 17951723 (Version 1)
Quarter: 2020Q2

REPORT INFORMATION
  Report Type: Spontaneous
  Country: US (occurrence: US)
  Receive Date: 20200626
  Receipt Date: 20200626
  Transmission Date: 20200714
  Serious: Yes (Hospitalization, Other)
  Sender: FDA-Public Use
  Company Number: US-TEVA-2020-US-1240157

PATIENT

DRUGS (28)
  1. TESTOSTERONE. [Suspect]
     Active Substance: TESTOSTERONE
     Route: 062
  2. DIAZEPAM. [Suspect]
     Active Substance: DIAZEPAM
     Route: 048
  3. MIRALAX [Suspect]
     Active Substance: POLYETHYLENE GLYCOL 3350
     Route: 048
  4. MELATONIN [Suspect]
     Active Substance: MELATONIN
     Route: 048
  5. SPIRIVA [Suspect]
     Active Substance: TIOTROPIUM BROMIDE MONOHYDRATE
     Route: 065
  6. EMLA [Suspect]
     Active Substance: LIDOCAINE\PRILOCAINE
     Route: 065
  7. POTASSIUM CHLORIDE. [Suspect]
     Active Substance: POTASSIUM CHLORIDE
     Dosage: EXTENDED RELEASE
     Route: 048
  8. PANTOPRAZOLE SODIUM. [Suspect]
     Active Substance: PANTOPRAZOLE SODIUM
     Route: 048
  9. ONDANSETRON [Suspect]
     Active Substance: ONDANSETRON
     Route: 048
  10. VALACICLOVIR [Suspect]
     Active Substance: VALACYCLOVIR HYDROCHLORIDE
     Route: 048
  11. VITAMIN D2 [Suspect]
     Active Substance: ERGOCALCIFEROL
     Dosage: 2000U
     Route: 048
  12. COLACE [Suspect]
     Active Substance: DOCUSATE SODIUM
     Route: 048
  13. LATANOPROST. [Suspect]
     Active Substance: LATANOPROST
     Route: 047
  14. CYMBALTA [Suspect]
     Active Substance: DULOXETINE HYDROCHLORIDE
     Route: 048
  15. TOPIRAMATE. [Suspect]
     Active Substance: TOPIRAMATE
     Route: 048
  16. OXYCODONE [Suspect]
     Active Substance: OXYCODONE
     Route: 048
  17. FINASTERIDE. [Suspect]
     Active Substance: FINASTERIDE
     Route: 048
  18. HEPARIN LOCK FLUSH [Suspect]
     Active Substance: HEPARIN SODIUM
     Dosage: STRENGTH: 100 U/ML
     Route: 065
  19. METHADONE [Suspect]
     Active Substance: METHADONE HYDROCHLORIDE
     Route: 048
  20. VIMPAT [Suspect]
     Active Substance: LACOSAMIDE
     Route: 048
  21. MAALOX MAX [Suspect]
     Active Substance: ALUMINUM HYDROXIDE\DIMETHICONE\MAGNESIUM HYDROXIDE
     Dosage: 400-400-40 / 5ML
     Route: 065
  22. BOSULIF [Suspect]
     Active Substance: BOSUTINIB MONOHYDRATE
     Route: 048
     Dates: start: 20190918, end: 20200515
  23. ADVAIR DISKUS [Suspect]
     Active Substance: FLUTICASONE PROPIONATE\SALMETEROL XINAFOATE
     Dosage: 250 - 50 MG
     Route: 048
  24. CYANOCOBAALIN [Suspect]
     Active Substance: CYANOCOBALAMIN
     Dosage: IJ
     Route: 065
  25. CYCLOBENZAPRINE. [Suspect]
     Active Substance: CYCLOBENZAPRINE
     Route: 048
  26. FUROSEMIDE. [Suspect]
     Active Substance: FUROSEMIDE
     Route: 048
  27. RESTASIS [Suspect]
     Active Substance: CYCLOSPORINE
     Route: 047
  28. TUMS [Suspect]
     Active Substance: CALCIUM CARBONATE
     Route: 048

REACTIONS (2)
  - COVID-19 [Unknown]
  - Acute lymphocytic leukaemia [Not Recovered/Not Resolved]
